FAERS Safety Report 15711323 (Version 3)
Quarter: 2019Q1

REPORT INFORMATION
  Report Type: Report from Study
  Country: US (occurrence: US)
  Receive Date: 20181211
  Receipt Date: 20190226
  Transmission Date: 20190417
  Serious: Yes (Death, Hospitalization)
  Sender: FDA-Public Use
  Company Number: US-ACTELION-A-NJ2018-167353

PATIENT
  Age: 81 Year
  Sex: Female
  Weight: 45.35 kg

DRUGS (4)
  1. AMLODIPINE [Concomitant]
     Active Substance: AMLODIPINE BESYLATE
  2. OXYGEN. [Concomitant]
     Active Substance: OXYGEN
  3. WARFARIN [Concomitant]
     Active Substance: WARFARIN
  4. OPSUMIT [Suspect]
     Active Substance: MACITENTAN
     Indication: PULMONARY ARTERIAL HYPERTENSION
     Dosage: 10 MG, QD
     Route: 048

REACTIONS (18)
  - Hip fracture [Unknown]
  - Hip surgery [Unknown]
  - Oropharyngeal pain [Unknown]
  - Asthenia [Unknown]
  - Death [Fatal]
  - Infection [Unknown]
  - Syncope [Unknown]
  - Condition aggravated [Unknown]
  - Hypercapnia [Unknown]
  - Unevaluable event [Unknown]
  - Feeling abnormal [Unknown]
  - Pulmonary arterial hypertension [Unknown]
  - Influenza [Unknown]
  - Fall [Unknown]
  - White blood cell count decreased [Unknown]
  - Dysphonia [Unknown]
  - Product dose omission [Unknown]
  - General physical health deterioration [Unknown]

NARRATIVE: CASE EVENT DATE: 20181128
